FAERS Safety Report 10915940 (Version 1)
Quarter: 2015Q1

REPORT INFORMATION
  Report Type: Other
  Country: GB (occurrence: GB)
  Receive Date: 20150316
  Receipt Date: 20150316
  Transmission Date: 20150721
  Serious: Yes (Life-Threatening)
  Sender: FDA-Public Use
  Company Number: GB-MYLANLABS-2015M1006676

PATIENT

DRUGS (1)
  1. OLANZAPINE. [Suspect]
     Active Substance: OLANZAPINE
     Indication: BIPOLAR DISORDER
     Dosage: 2.5 MG, UNK (BEEN ON FOR MANY YEARS)
     Route: 048

REACTIONS (3)
  - Pulmonary embolism [Recovering/Resolving]
  - Syncope [Unknown]
  - Hypoxia [Unknown]

NARRATIVE: CASE EVENT DATE: 20150219
